FAERS Safety Report 9994811 (Version 2)
Quarter: 2014Q1

REPORT INFORMATION
  Report Type: Report from Study
  Country: US (occurrence: US)
  Receive Date: 20140311
  Receipt Date: 20140317
  Transmission Date: 20141002
  Serious: Yes (Hospitalization)
  Sender: FDA-Public Use
  Company Number: US-JNJFOC-20140302814

PATIENT
  Age: 21 Year
  Sex: Female
  Weight: 58.2 kg

DRUGS (6)
  1. REMICADE [Suspect]
     Indication: CROHN^S DISEASE
     Route: 042
     Dates: start: 20040514
  2. CIMZIA [Concomitant]
     Indication: CROHN^S DISEASE
     Route: 065
     Dates: start: 20110302, end: 201402
  3. FOLIC ACID [Concomitant]
     Route: 065
  4. IRON [Concomitant]
     Route: 065
  5. MULTIVITAMINS [Concomitant]
     Route: 065
  6. CALCIUM CITRATE [Concomitant]
     Route: 065

REACTIONS (2)
  - Crohn^s disease [Recovered/Resolved]
  - Ileal stenosis [Recovered/Resolved]
